FAERS Safety Report 12713140 (Version 4)
Quarter: 2017Q3

REPORT INFORMATION
  Report Type: Report from Study
  Country: JP (occurrence: JP)
  Receive Date: 20160902
  Receipt Date: 20170804
  Transmission Date: 20171127
  Serious: Yes (Hospitalization)
  Sender: FDA-Public Use
  Company Number: JP-ASTRAZENECA-2016SE92998

PATIENT
  Age: 72 Year
  Sex: Female
  Weight: 39 kg

DRUGS (5)
  1. PARIET [Concomitant]
     Active Substance: RABEPRAZOLE SODIUM
     Dosage: AFTER EVENING MEAL
     Route: 065
     Dates: start: 20160512, end: 20160627
  2. FERROMIA [Concomitant]
     Active Substance: FERROUS CITRATE
     Dosage: AFTER BREAKFAST AND EVENING MEAL
     Route: 048
     Dates: start: 20160708
  3. TAGRISSO [Suspect]
     Active Substance: OSIMERTINIB
     Indication: NON-SMALL CELL LUNG CANCER
     Route: 048
     Dates: start: 20160818
  4. NEXIUM [Concomitant]
     Active Substance: ESOMEPRAZOLE MAGNESIUM
     Dosage: AFTER BREAKFAST
     Route: 048
     Dates: start: 20160628
  5. TAGRISSO [Suspect]
     Active Substance: OSIMERTINIB
     Indication: NON-SMALL CELL LUNG CANCER
     Route: 048
     Dates: start: 20160428, end: 20160615

REACTIONS (3)
  - Duodenal ulcer [Recovering/Resolving]
  - Duodenal stenosis [Recovering/Resolving]
  - Iron deficiency anaemia [Recovered/Resolved]

NARRATIVE: CASE EVENT DATE: 20160509
